FAERS Safety Report 11177769 (Version 1)
Quarter: 2015Q2

REPORT INFORMATION
  Report Type: Spontaneous
  Country: US (occurrence: None)
  Receive Date: 20150515
  Receipt Date: 20150515
  Transmission Date: 20150821
  Serious: Yes (Other)
  Sender: FDA-Public Use
  Company Number: 115729U

PATIENT
  Age: 40 Year
  Sex: Female

DRUGS (1)
  1. CIMZIA [Suspect]
     Active Substance: CERTOLIZUMAB PEGOL
     Indication: RHEUMATOID ARTHRITIS
     Dosage: STRENGTH: 200MG, DAY ^0^ DOSE 400MG, SUBCUTANEOUS
     Route: 058
     Dates: start: 20140221, end: 20140221

REACTIONS (6)
  - Blood glucose decreased [None]
  - Hypersensitivity [None]
  - Feeling jittery [None]
  - Dizziness [None]
  - Confusional state [None]
  - Heart rate increased [None]

NARRATIVE: CASE EVENT DATE: 20140221
